FAERS Safety Report 20683392 (Version 2)
Quarter: 2022Q4

REPORT INFORMATION
  Report Type: Spontaneous
  Country: FR (occurrence: FR)
  Receive Date: 20220407
  Receipt Date: 20221213
  Transmission Date: 20230112
  Serious: Yes (Hospitalization)
  Sender: FDA-Public Use
  Company Number: FR-GLAXOSMITHKLINE-FR2022EME059300

PATIENT

DRUGS (4)
  1. BELANTAMAB MAFODOTIN [Suspect]
     Active Substance: BELANTAMAB MAFODOTIN
     Indication: Plasma cell myeloma
     Dosage: 137 MG, CYC (EVERY 3 WEEKS)
     Route: 042
     Dates: start: 20210203
  2. BELANTAMAB MAFODOTIN [Suspect]
     Active Substance: BELANTAMAB MAFODOTIN
     Dosage: 137 MG, CYC (EVERY 3 WEEKS)
     Route: 042
     Dates: start: 20210622
  3. BELANTAMAB MAFODOTIN [Suspect]
     Active Substance: BELANTAMAB MAFODOTIN
     Dosage: 137 MG, CYC (EVERY 3 WEEKS)
     Route: 042
     Dates: start: 20210713
  4. BELANTAMAB MAFODOTIN [Suspect]
     Active Substance: BELANTAMAB MAFODOTIN
     Dosage: 137 MG, CYC (EVERY 3 WEEKS)
     Route: 042
     Dates: start: 20210803

REACTIONS (5)
  - General physical health deterioration [Recovering/Resolving]
  - Drug intolerance [Recovered/Resolved]
  - Nausea [Recovering/Resolving]
  - Keratopathy [Unknown]
  - Chills [Unknown]

NARRATIVE: CASE EVENT DATE: 20210315
